FAERS Safety Report 4355425-X (Version None)
Quarter: 2004Q2

REPORT INFORMATION
  Report Type: 
  Country: None (occurrence: None)
  Receive Date: 20040504
  Receipt Date: 20040423
  Transmission Date: 20050107
  Serious: Yes (Hospitalization)
  Sender: FDA-Public Use
  Company Number: JP-JNJFOC-20040303267

PATIENT
  Age: 90 Year
  Sex: Male

DRUGS (6)
  1. FENTANYL [Suspect]
     Indication: CANCER PAIN
     Dosage: 2.5 MG, 1 IN 3 DAY, TRANSDERMAL
     Route: 062
     Dates: start: 20030511, end: 20030517
  2. FENTANYL [Suspect]
     Indication: CANCER PAIN
     Dosage: 2.5 MG, 1 IN 3 DAY, TRANSDERMAL
     Route: 062
     Dates: start: 20030516, end: 20030528
  3. AMLODIPINE BESIALTE (AMLODIPINE BESILATE) [Concomitant]
  4. ZOPICLONE (ZOPICLONE) [Concomitant]
  5. ECABET SODIUM (ECABET) [Concomitant]
  6. SENNOSIDE (ALL OTHER THERAPEUTIC PRODUCTS) [Concomitant]

REACTIONS (7)
  - APPLICATION SITE REACTION [None]
  - CHOKING [None]
  - DRY SKIN [None]
  - MEDICATION ERROR [None]
  - OVERDOSE [None]
  - PNEUMONIA ASPIRATION [None]
  - SOMNOLENCE [None]
